FAERS Safety Report 4836162-1 (Version None)
Quarter: 2005Q4

REPORT INFORMATION
  Report Type: 
  Country: None (occurrence: None)
  Receive Date: 20051123
  Receipt Date: 20051116
  Transmission Date: 20060501
  Serious: Yes (Other)
  Sender: FDA-Public Use
  Company Number: US-JNJFOC-20051104614

PATIENT
  Sex: Male
  Weight: 89.81 kg

DRUGS (5)
  1. DURAGESIC-100 [Suspect]
     Route: 062
  2. DURAGESIC-100 [Suspect]
     Route: 062
  3. PERCOCET [Concomitant]
  4. PERCOCET [Concomitant]
     Indication: BREAKTHROUGH PAIN
  5. NEXIUM [Concomitant]

REACTIONS (1)
  - NARCOLEPSY [None]
